FAERS Safety Report 6213440-5 (Version None)
Quarter: 2009Q2

REPORT INFORMATION
  Report Type: 
  Country: None (occurrence: None)
  Receive Date: 20090603
  Receipt Date: 20090509
  Transmission Date: 20091009
  Serious: Yes (Hospitalization)
  Sender: FDA-Public Use
  Company Number: VE-ROCHE-631728

PATIENT
  Age: 15 Year
  Sex: Female
  Weight: 88.1 kg

DRUGS (1)
  1. ROACCUTANE [Suspect]
     Indication: ACNE
     Route: 048
     Dates: start: 20081212, end: 20081224

REACTIONS (5)
  - NEPHROTIC SYNDROME [None]
  - OEDEMA [None]
  - OLIGURIA [None]
  - PROTEINURIA [None]
  - THYROID DISORDER [None]
